FAERS Safety Report 23561030 (Version 2)
Quarter: 2024Q1

REPORT INFORMATION
  Report Type: Spontaneous
  Country: US (occurrence: None)
  Receive Date: 20240224
  Receipt Date: 20240327
  Transmission Date: 20240409
  Serious: No
  Sender: FDA-Public Use
  Company Number: 2024A034028

PATIENT
  Sex: Female

DRUGS (1)
  1. SAPHNELO [Suspect]
     Active Substance: ANIFROLUMAB\ANIFROLUMAB-FNIA
     Dosage: UNKNOWN

REACTIONS (3)
  - Candida infection [Unknown]
  - Systemic lupus erythematosus [Unknown]
  - Teeth brittle [Unknown]
